FAERS Safety Report 5032793-7 (Version None)
Quarter: 2006Q2

REPORT INFORMATION
  Report Type: 
  Country: None (occurrence: None)
  Receive Date: 20060622
  Receipt Date: 20060302
  Transmission Date: 20061013
  Serious: Yes (Hospitalization)
  Sender: FDA-Public Use
  Company Number: FR-GILEAD-2006-0009416

PATIENT
  Sex: Male
  Weight: 48.5 kg

DRUGS (10)
  1. TRUVADA [Suspect]
     Indication: HIV INFECTION
     Route: 048
     Dates: start: 20060216
  2. EFAVIRENZ [Concomitant]
     Indication: HIV INFECTION
     Route: 048
     Dates: start: 20060216
  3. RIFATER [Concomitant]
     Indication: TUBERCULOSIS
     Route: 048
     Dates: start: 20051228
  4. ISONIAZID [Concomitant]
     Indication: TUBERCULOSIS
     Dates: start: 20051228
  5. NEXIUM [Concomitant]
     Indication: VOMITING
     Route: 048
     Dates: start: 20060105
  6. BACTRIM [Concomitant]
     Indication: ANTIBIOTIC PROPHYLAXIS
     Route: 048
     Dates: start: 20051227
  7. MYAMBUTHOL [Concomitant]
     Dates: end: 20060215
  8. ROVALCYTE [Concomitant]
     Dates: end: 20060131
  9. THIAMINE HCL [Concomitant]
  10. VITAMIN B6 [Concomitant]

REACTIONS (6)
  - CENTRAL LINE INFECTION [None]
  - COLITIS [None]
  - IMMUNE RECONSTITUTION SYNDROME [None]
  - ORAL CANDIDIASIS [None]
  - STAPHYLOCOCCAL INFECTION [None]
  - VENA CAVA THROMBOSIS [None]
